FAERS Safety Report 15284225 (Version 2)
Quarter: 2019Q1

REPORT INFORMATION
  Report Type: Report from Study
  Country: DE (occurrence: DE)
  Receive Date: 20180816
  Receipt Date: 20190306
  Transmission Date: 20190417
  Serious: Yes (Other)
  Sender: FDA-Public Use
  Company Number: DE-PFIZER INC-2018324542

PATIENT
  Age: 8 Year
  Sex: Female
  Weight: 24 kg

DRUGS (13)
  1. ROACTEMRA [Suspect]
     Active Substance: TOCILIZUMAB
     Dosage: DAILY DOSE: 280 MG MILLGRAM(S) EVERY 2 WEEKS
     Route: 042
     Dates: start: 20130611
  2. ROACTEMRA [Suspect]
     Active Substance: TOCILIZUMAB
     Dosage: DAILY DOSE: 280 MG MILLGRAM(S) EVERY 2 WEEKS
     Route: 042
     Dates: start: 20130723
  3. METHOTREXATE SODIUM. [Suspect]
     Active Substance: METHOTREXATE SODIUM
     Dosage: DAILY DOSE: 12.5 MG MILLGRAM(S) EVERY WEEKS
     Route: 048
  4. ROACTEMRA [Suspect]
     Active Substance: TOCILIZUMAB
     Dosage: DAILY DOSE: 280 MG MILLGRAM(S) EVERY 2 WEEKS
     Route: 042
     Dates: start: 20130625
  5. ROACTEMRA [Suspect]
     Active Substance: TOCILIZUMAB
     Dosage: DAILY DOSE: 360 MG MILLGRAM(S) EVERY 2 WEEKS
     Route: 042
     Dates: start: 20140101
  6. PREDNISON [Concomitant]
     Active Substance: PREDNISONE
     Dosage: DAILY DOSE: 3.75 MG MILLGRAM(S) EVERY DAYS
     Route: 048
  7. FOLIC ACID. [Concomitant]
     Active Substance: FOLIC ACID
     Dosage: DAILY DOSE: 5 MG MILLGRAM(S) EVERY WEEKS
     Route: 048
  8. IBUPROFEN. [Suspect]
     Active Substance: IBUPROFEN
     Indication: STILL^S DISEASE
     Route: 065
     Dates: start: 20170413
  9. ROACTEMRA [Suspect]
     Active Substance: TOCILIZUMAB
     Dosage: TOTAL MONTHLY DOSE: 560 MG
     Route: 042
     Dates: start: 20130430
  10. ROACTEMRA [Suspect]
     Active Substance: TOCILIZUMAB
     Indication: STILL^S DISEASE
     Dosage: DAILY DOSE: 280 MG MILLGRAM(S) EVERY 2 WEEKS
     Route: 042
     Dates: start: 20130709
  11. INDOMETACIN [Concomitant]
     Active Substance: INDOMETHACIN
     Dosage: DAILY DOSE: 25 MG MILLGRAM(S) EVERY DAYS
     Route: 048
  12. METHOTREXATE SODIUM. [Suspect]
     Active Substance: METHOTREXATE SODIUM
     Indication: STILL^S DISEASE
     Dosage: DAILY DOSE: 10 MG MILLGRAM(S) EVERY WEEKS
     Route: 058
  13. ROACTEMRA [Suspect]
     Active Substance: TOCILIZUMAB
     Dosage: DAILY DOSE: 320 MG MILLGRAM(S) EVERY 3 WEEKS
     Route: 042
     Dates: start: 20121001

REACTIONS (7)
  - Upper respiratory tract infection [Recovered/Resolved]
  - Gastroenteritis [Recovered/Resolved]
  - Lyme disease [Recovered/Resolved]
  - Neutropenia [Not Recovered/Not Resolved]
  - Otitis media [Recovered/Resolved]
  - Aphthous ulcer [Recovered/Resolved]
  - Visual impairment [Recovered/Resolved]

NARRATIVE: CASE EVENT DATE: 20130710
